FAERS Safety Report 13713876 (Version 1)
Quarter: 2017Q3

REPORT INFORMATION
  Report Type: Report from Study
  Country: None (occurrence: BR)
  Receive Date: 20170704
  Receipt Date: 20170704
  Transmission Date: 20171127
  Serious: Yes (Other)
  Sender: FDA-Public Use
  Company Number: BR-ABBVIE-17K-020-2025275-00

PATIENT
  Age: 47 Year
  Sex: Female
  Weight: 75.4 kg

DRUGS (10)
  1. DOMPERIDONE [Concomitant]
     Active Substance: DOMPERIDONE
     Indication: GASTROOESOPHAGEAL REFLUX DISEASE
     Route: 048
     Dates: start: 2007
  2. DEPAKENE [Concomitant]
     Active Substance: VALPROIC ACID
     Indication: EPILEPSY
  3. HUMIRA [Suspect]
     Active Substance: ADALIMUMAB
     Indication: ANKYLOSING SPONDYLITIS
     Route: 058
     Dates: start: 20170408
  4. AMITRIPTYLINE [Concomitant]
     Active Substance: AMITRIPTYLINE
     Indication: EPILEPSY
     Route: 048
     Dates: start: 2011
  5. AMITRIPTYLINE [Concomitant]
     Active Substance: AMITRIPTYLINE
     Indication: FIBROMYALGIA
  6. METILDOPA [Concomitant]
     Active Substance: METHYLDOPA
     Indication: HYPERTENSION
     Route: 048
     Dates: start: 201609
  7. DEPAKENE [Concomitant]
     Active Substance: VALPROIC ACID
     Indication: AFFECTIVE DISORDER
     Route: 048
     Dates: start: 2011
  8. IMIPRAMINE [Concomitant]
     Active Substance: IMIPRAMINE
     Indication: AFFECTIVE DISORDER
     Route: 048
     Dates: start: 2011
  9. BROMOPRIDE [Concomitant]
     Active Substance: BROMOPRIDE
     Indication: GASTROOESOPHAGEAL REFLUX DISEASE
     Route: 048
     Dates: start: 2007
  10. HYDROCHLOROTHIAZIDE. [Concomitant]
     Active Substance: HYDROCHLOROTHIAZIDE
     Indication: DIURETIC THERAPY
     Route: 048
     Dates: start: 1997

REACTIONS (5)
  - Tendon rupture [Not Recovered/Not Resolved]
  - Tendonitis [Not Recovered/Not Resolved]
  - Depressed mood [Unknown]
  - Fall [Recovered/Resolved]
  - Joint injury [Recovered/Resolved]

NARRATIVE: CASE EVENT DATE: 2017
